FAERS Safety Report 5868053-1 (Version None)
Quarter: 2008Q3

REPORT INFORMATION
  Report Type: 
  Country: None (occurrence: None)
  Receive Date: 20080902
  Receipt Date: 20080826
  Transmission Date: 20090109
  Serious: Yes (Other)
  Sender: FDA-Public Use
  Company Number: JP-ASTRAZENECA-2008AP02442

PATIENT
  Age: 14 Day
  Sex: Female
  Weight: 0.5 kg

DRUGS (1)
  1. PULMICORT-100 [Suspect]
     Indication: LUNG DISORDER
     Dosage: VIA AN ENDOTRACHEAL TUBE
     Route: 055
     Dates: start: 20070615, end: 20070618

REACTIONS (1)
  - HYPERGLYCAEMIA [None]
